FAERS Safety Report 8493264-9 (Version None)
Quarter: 2012Q2

REPORT INFORMATION
  Report Type: 
  Country: None (occurrence: None)
  Receive Date: 20120628
  Receipt Date: 20120621
  Transmission Date: 20120825
  Serious: Yes (Other)
  Sender: FDA-Public Use
  Company Number: DSA_57487_2012

PATIENT
  Sex: Female

DRUGS (1)
  1. XENAZINE [Suspect]
     Indication: DYSKINESIA
     Dosage: (25 MG TID ORAL) ; (12.5 MG TID ORAL)
     Route: 048
     Dates: start: 20110706

REACTIONS (2)
  - TREMOR [None]
  - PARKINSONISM [None]
